FAERS Safety Report 13901954 (Version 1)
Quarter: 2017Q3

REPORT INFORMATION
  Report Type: Spontaneous
  Country: US (occurrence: US)
  Receive Date: 20170824
  Receipt Date: 20170824
  Transmission Date: 20171127
  Serious: No
  Sender: FDA-Public Use
  Company Number: US-ROCHE-1129906

PATIENT
  Sex: Female

DRUGS (6)
  1. HERCEPTIN [Suspect]
     Active Substance: TRASTUZUMAB
     Indication: BREAST CANCER METASTATIC
     Dosage: LOADING DOSE
     Route: 065
  2. DECADRON [Concomitant]
     Active Substance: DEXAMETHASONE
  3. TYLENOL [Concomitant]
     Active Substance: ACETAMINOPHEN
  4. COMPAZINE [Concomitant]
     Active Substance: PROCHLORPERAZINE MALEATE
  5. SUDAFED [Concomitant]
     Active Substance: PSEUDOEPHEDRINE HYDROCHLORIDE
  6. HERCEPTIN [Suspect]
     Active Substance: TRASTUZUMAB
     Dosage: MAINTENANCE DOSE
     Route: 065

REACTIONS (6)
  - Disease progression [Unknown]
  - Nausea [Unknown]
  - Somnolence [Unknown]
  - Cough [Unknown]
  - Chills [Unknown]
  - Abdominal discomfort [Unknown]
